FAERS Safety Report 17546565 (Version 1)
Quarter: 2020Q1

REPORT INFORMATION
  Report Type: Report from Study
  Country: US (occurrence: US)
  Receive Date: 20200316
  Receipt Date: 20200316
  Transmission Date: 20200409
  Serious: Yes (Other)
  Sender: FDA-Public Use
  Company Number: US-AMGEN-USASL2020041409

PATIENT
  Age: 82 Year
  Sex: Female

DRUGS (4)
  1. PROLIA [Suspect]
     Active Substance: DENOSUMAB
     Indication: OSTEOPOROSIS POSTMENOPAUSAL
     Dosage: UNK, Q6MO
     Route: 065
  2. METHOTREXATE. [Concomitant]
     Active Substance: METHOTREXATE
     Dosage: UNK, Q2WK
  3. BOTOX [Concomitant]
     Active Substance: ONABOTULINUMTOXINA
  4. HUMIRA [Concomitant]
     Active Substance: ADALIMUMAB
     Dosage: UNK, Q2WK

REACTIONS (4)
  - Wrist fracture [Unknown]
  - Fall [Unknown]
  - Macular degeneration [Unknown]
  - Balance disorder [Unknown]

NARRATIVE: CASE EVENT DATE: 201712
